FAERS Safety Report 4723220-5 (Version None)
Quarter: 2005Q3

REPORT INFORMATION
  Report Type: 
  Country: None (occurrence: None)
  Receive Date: 20050719
  Receipt Date: 20040812
  Transmission Date: 20060218
  Serious: Yes (Hospitalization, Other)
  Sender: FDA-Public Use
  Company Number: 202907

PATIENT
  Age: 29 Year
  Sex: Female
  Weight: 69.8539 kg

DRUGS (3)
  1. AVONEX [Suspect]
     Indication: MULTIPLE SCLEROSIS
     Dosage: 30 UG; QW; IM
     Route: 030
     Dates: start: 19980101, end: 20030801
  2. AVONEX [Suspect]
     Indication: MULTIPLE SCLEROSIS
     Dosage: 30 UG; QW; IM
     Route: 030
     Dates: start: 20030801, end: 20040701
  3. AVONEX [Suspect]
     Indication: MULTIPLE SCLEROSIS
     Dosage: 30 UG; QW; IM
     Route: 030
     Dates: start: 20040701

REACTIONS (9)
  - AMNESIA [None]
  - CONVULSION [None]
  - DYSPNOEA [None]
  - FATIGUE [None]
  - GRAND MAL CONVULSION [None]
  - MULTIPLE SCLEROSIS RELAPSE [None]
  - MUSCULAR WEAKNESS [None]
  - PANIC ATTACK [None]
  - POSTURE ABNORMAL [None]
